FAERS Safety Report 6160362-4 (Version None)
Quarter: 2009Q2

REPORT INFORMATION
  Report Type: 
  Country: None (occurrence: None)
  Receive Date: 20090420
  Receipt Date: 20090414
  Transmission Date: 20091009
  Serious: Yes (Hospitalization)
  Sender: FDA-Public Use
  Company Number: FR-JNJFOC-20090403380

PATIENT
  Sex: Female

DRUGS (4)
  1. HALDOL FAIBLE [Suspect]
     Indication: ABNORMAL BEHAVIOUR
     Route: 065
     Dates: end: 20081213
  2. PROZAC [Suspect]
     Indication: DRUG USE FOR UNKNOWN INDICATION
     Route: 065
  3. PERIDYS [Suspect]
     Indication: NAUSEA
     Route: 065
  4. EQUANIL [Suspect]
     Indication: ANXIETY
     Route: 065

REACTIONS (1)
  - EPILEPSY [None]
